FAERS Safety Report 9710644 (Version 1)
Quarter: 2013Q4

REPORT INFORMATION
  Report Type: Spontaneous
  Country: US (occurrence: US)
  Receive Date: 20131126
  Receipt Date: 20131126
  Transmission Date: 20140711
  Serious: No
  Sender: FDA-Public Use
  Company Number: US-BRISTOL-MYERS SQUIBB COMPANY-19001270

PATIENT
  Age: 72 Year
  Sex: Female
  Weight: 101.58 kg

DRUGS (3)
  1. BYDUREON [Suspect]
     Indication: TYPE 2 DIABETES MELLITUS
     Dosage: NO OF INJECTIONS:6
  2. BYDUREON [Suspect]
     Indication: WEIGHT DECREASED
     Dosage: NO OF INJECTIONS:6
  3. METFORMIN HCL TABS 500MG [Concomitant]
     Dosage: TAKEN FOUR 500MG TABLETS, TOTAL OF 2000MG A DAY

REACTIONS (2)
  - Injection site nodule [Unknown]
  - Injection site rash [Unknown]
